FAERS Safety Report 8578003-5 (Version None)
Quarter: 2012Q3

REPORT INFORMATION
  Report Type: 
  Country: None (occurrence: None)
  Receive Date: 20120808
  Receipt Date: 20120801
  Transmission Date: 20120928
  Serious: Yes (Hospitalization)
  Sender: FDA-Public Use
  Company Number: US-GENZYME-POMP-1002324

PATIENT
  Sex: Female
  Weight: 50.6 kg

DRUGS (7)
  1. LUMIZYME [Suspect]
     Indication: GLYCOGEN STORAGE DISEASE TYPE II
     Dosage: 17.8 MG/KG, Q2W
     Route: 042
  2. ZOLOFT [Concomitant]
     Indication: PRODUCT USED FOR UNKNOWN INDICATION
     Dosage: UNK
     Route: 065
  3. LUMIZYME [Suspect]
     Dosage: 19.8 MG/KG, Q2W
     Route: 042
  4. ELAVIL [Concomitant]
     Indication: PRODUCT USED FOR UNKNOWN INDICATION
     Dosage: UNK
     Route: 065
  5. IBUPROFEN [Concomitant]
     Indication: PREMEDICATION
     Dosage: UNK
     Route: 042
  6. SOLU-MEDROL [Concomitant]
     Indication: PREMEDICATION
     Dosage: UNK
     Route: 042
  7. BENADRYL [Concomitant]
     Indication: PREMEDICATION
     Dosage: UNK
     Route: 042

REACTIONS (4)
  - PARAESTHESIA [None]
  - PAIN [None]
  - DIZZINESS [None]
  - MUSCLE SPASMS [None]
